FAERS Safety Report 6126697-6 (Version None)
Quarter: 2009Q1

REPORT INFORMATION
  Report Type: 
  Country: None (occurrence: None)
  Receive Date: 20090320
  Receipt Date: 20090310
  Transmission Date: 20090719
  Serious: Yes (Other)
  Sender: FDA-Public Use
  Company Number: PHEH2009US02481

PATIENT
  Age: 55 Year
  Sex: Female

DRUGS (4)
  1. FOCALIN XR [Suspect]
     Dosage: 20 MG, QD
  2. AMBIEN [Concomitant]
     Dosage: 10 MG, UNK
  3. TRAZODONE HCL [Concomitant]
     Dosage: 50 MG, UNK
  4. CYMBALTA [Concomitant]
     Dosage: 50 MG, UNK

REACTIONS (9)
  - AKATHISIA [None]
  - CONTUSION [None]
  - FALL [None]
  - LACERATION [None]
  - PARKINSON'S DISEASE [None]
  - TARDIVE DYSKINESIA [None]
  - TIC [None]
  - TREMOR [None]
  - WOUND [None]
